FAERS Safety Report 14892915 (Version 1)
Quarter: 2018Q2

REPORT INFORMATION
  Report Type: Spontaneous
  Country: US (occurrence: US)
  Receive Date: 20180426
  Receipt Date: 20180426
  Transmission Date: 20180711
  Serious: No
  Sender: FDA-Public Use
  Company Number: None

PATIENT
  Age: 70 Year
  Sex: Male
  Weight: 54 kg

DRUGS (2)
  1. LEVOTHYROXIN [Concomitant]
     Active Substance: LEVOTHYROXINE
  2. NUPLAZID [Suspect]
     Active Substance: PIMAVANSERIN TARTRATE
     Indication: DEMENTIA WITH LEWY BODIES
     Dosage: ?          QUANTITY:2 TABLET(S);?
     Route: 048
     Dates: start: 20180120, end: 20180307

REACTIONS (13)
  - Blood cholesterol increased [None]
  - Rash [None]
  - Tremor [None]
  - Constipation [None]
  - Anxiety [None]
  - Nausea [None]
  - Gait disturbance [None]
  - Restlessness [None]
  - Agitation [None]
  - Drug ineffective [None]
  - Condition aggravated [None]
  - Angina pectoris [None]
  - Amnesia [None]
